FAERS Safety Report 8111212-8 (Version None)
Quarter: 2012Q1

REPORT INFORMATION
  Report Type: 
  Country: None (occurrence: None)
  Receive Date: 20120203
  Receipt Date: 20110624
  Transmission Date: 20120608
  Serious: No
  Sender: FDA-Public Use
  Company Number: US-GLAXOSMITHKLINE-A0932942A

PATIENT
  Age: 54 Year
  Sex: Female

DRUGS (7)
  1. FISH OIL [Concomitant]
  2. CALCIUM [Concomitant]
  3. HORMONE REPLACEMENT THERAPY [Concomitant]
  4. LEXAPRO [Concomitant]
  5. VITAMIN D [Concomitant]
  6. LAMICTAL [Suspect]
     Indication: DEPRESSION
     Dosage: 300MG PER DAY
     Route: 048
     Dates: start: 20101101
  7. BUPROPION HCL [Concomitant]

REACTIONS (5)
  - SEDATION [None]
  - RASH [None]
  - FEELING ABNORMAL [None]
  - RASH MACULO-PAPULAR [None]
  - PRURITUS [None]
